FAERS Safety Report 5724943-1 (Version None)
Quarter: 2008Q2

REPORT INFORMATION
  Report Type: 
  Country: None (occurrence: None)
  Receive Date: 20080430
  Receipt Date: 20080430
  Transmission Date: 20081010
  Serious: Yes (Other)
  Sender: FDA-Public Use
  Company Number: None

PATIENT
  Sex: Male
  Weight: 10.8863 kg

DRUGS (3)
  1. SINGULAIR [Suspect]
     Indication: PNEUMONIA
     Dosage: CHEWABLE PILLS 4 1/DAY PO
     Route: 048
     Dates: start: 20061228, end: 20080327
  2. SINGULAIR [Suspect]
     Indication: RESPIRATORY SYNCYTIAL VIRUS INFECTION
     Dosage: CHEWABLE PILLS 4 1/DAY PO
     Route: 048
     Dates: start: 20061228, end: 20080327
  3. FLOVENT [Suspect]
     Dosage: INHAILER 4/DAY OTHER
     Route: 050
     Dates: start: 20071110, end: 20080327

REACTIONS (9)
  - AGITATION [None]
  - CRYING [None]
  - DISEASE RECURRENCE [None]
  - EMOTIONAL DISORDER [None]
  - ENERGY INCREASED [None]
  - FEELING COLD [None]
  - PNEUMONIA [None]
  - SLEEP TERROR [None]
  - WEIGHT GAIN POOR [None]
